FAERS Safety Report 7221596-0 (Version None)
Quarter: 2011Q1

REPORT INFORMATION
  Report Type: 
  Country: None (occurrence: None)
  Receive Date: 20110112
  Receipt Date: 20110106
  Transmission Date: 20110831
  Serious: Yes (Other)
  Sender: FDA-Public Use
  Company Number: CHPA2011GB00669

PATIENT
  Sex: Female

DRUGS (3)
  1. PARACETAMOL [Suspect]
     Dosage: 7.5 G, UNK
  2. DRUG THERAPY NOS [Suspect]
     Dosage: 15 CAPSULES, UNK
     Route: 048
  3. FERROUS SULFATE [Suspect]
     Dosage: 3.0 G ELEMENTAL IRON, UNK

REACTIONS (5)
  - DRUG EXPOSURE DURING PREGNANCY [None]
  - ASTHMA [None]
  - ANAEMIA [None]
  - GENITAL HERPES [None]
  - OVERDOSE [None]
